FAERS Safety Report 4310915-0 (Version None)
Quarter: 2004Q1

REPORT INFORMATION
  Report Type: 
  Country: None (occurrence: None)
  Receive Date: 20040304
  Receipt Date: 20040205
  Transmission Date: 20041129
  Serious: Yes (Other)
  Sender: FDA-Public Use
  Company Number: JP-BRISTOL-MYERS SQUIBB COMPANY-12503561

PATIENT
  Age: 37 Year
  Sex: Male

DRUGS (3)
  1. EFAVIRENZ CAPS [Suspect]
     Indication: HIV INFECTION
     Route: 048
  2. ZIDOVUDINE [Suspect]
     Indication: HIV INFECTION
     Route: 048
  3. LAMIVUDINE [Suspect]
     Indication: HIV INFECTION
     Route: 048

REACTIONS (4)
  - HISTIOCYTOSIS HAEMATOPHAGIC [None]
  - IMMUNE RECONSTITUTION SYNDROME [None]
  - PANCYTOPENIA [None]
  - PYREXIA [None]
